FAERS Safety Report 15418021 (Version 2)
Quarter: 2018Q4

REPORT INFORMATION
  Report Type: Spontaneous
  Country: JP (occurrence: JP)
  Receive Date: 20180924
  Receipt Date: 20181008
  Transmission Date: 20190204
  Serious: Yes (Hospitalization)
  Sender: FDA-Public Use
  Company Number: JP-MYLANLABS-2018M1068578

PATIENT
  Age: 6 Decade
  Sex: Female

DRUGS (4)
  1. TOPOTECAN [Suspect]
     Active Substance: TOPOTECAN HYDROCHLORIDE
     Indication: OVARIAN CLEAR CELL CARCINOMA
     Dosage: ON DAYS 1-5 EVERY THREE WEEKS AS FOURTH-LINE THERAPY. ON DAY 6 OF THE THIRD CYCLE ABDOMEN PAIN OC...
     Route: 065
  2. BEVACIZUMAB. [Interacting]
     Active Substance: BEVACIZUMAB
     Dosage: LATER, CHANGED THE REGIMEN TO BEVACIZUMAB ON DAY 1 EVERY THREE WEEKS AS FOURTH-LINE THERAPY. ON D...
     Route: 065
  3. PACLITAXEL. [Interacting]
     Active Substance: PACLITAXEL
     Indication: OVARIAN CLEAR CELL CARCINOMA
     Dosage: ON DAY 1, 8, AND 15 EVERY FOUR WEEKS AS THIRD-LINE CHEMOTHERAPY.
     Route: 065
  4. BEVACIZUMAB. [Interacting]
     Active Substance: BEVACIZUMAB
     Indication: OVARIAN CLEAR CELL CARCINOMA
     Dosage: ON DAY 1 EVERY FOUR WEEKS AS THIRD-LINE CHEMOTHERAPY
     Route: 065

REACTIONS (3)
  - Intestinal ischaemia [Recovered/Resolved]
  - Drug interaction [Recovered/Resolved]
  - Large intestine perforation [Recovered/Resolved]
